FAERS Safety Report 19145331 (Version 5)
Quarter: 2024Q2

REPORT INFORMATION
  Report Type: Other
  Country: CA (occurrence: CA)
  Receive Date: 20210416
  Receipt Date: 20240619
  Transmission Date: 20240716
  Serious: Yes (Hospitalization, Other)
  Sender: FDA-Public Use
  Company Number: CA-APOTEX-2021AP008801

PATIENT
  Age: 36 Year
  Sex: Female

DRUGS (38)
  1. AZATHIOPRINE [Suspect]
     Active Substance: AZATHIOPRINE
     Indication: Product used for unknown indication
     Dosage: UNK
     Route: 065
  2. ESCITALOPRAM [Suspect]
     Active Substance: ESCITALOPRAM OXALATE
     Indication: Product used for unknown indication
     Dosage: UNK
     Route: 065
  3. LANSOPRAZOLE [Suspect]
     Active Substance: LANSOPRAZOLE
     Indication: Product used for unknown indication
     Dosage: UNK
     Route: 065
  4. ALBUTEROL [Suspect]
     Active Substance: ALBUTEROL
     Indication: Product used for unknown indication
     Dosage: UNK
     Route: 065
  5. ALBUTEROL [Suspect]
     Active Substance: ALBUTEROL
     Dosage: UNK
     Route: 064
  6. TACROLIMUS [Suspect]
     Active Substance: TACROLIMUS
     Indication: Product used for unknown indication
     Dosage: UNK
     Route: 065
  7. ASPIRIN [Suspect]
     Active Substance: ASPIRIN
     Indication: Product used for unknown indication
     Dosage: UNK
     Route: 065
  8. METHYLDOPA [Suspect]
     Active Substance: METHYLDOPA
     Indication: Product used for unknown indication
     Dosage: UNK
     Route: 065
  9. BUPIVACAINE [Suspect]
     Active Substance: BUPIVACAINE
     Indication: Epidural anaesthesia
     Dosage: 1 MILLILITER, SOLUTION BLOCK/INFILTRATION
     Route: 065
  10. BUPIVACAINE [Suspect]
     Active Substance: BUPIVACAINE
     Indication: Induction of anaesthesia
     Dosage: 1 MILLILITER
     Route: 037
  11. BUPIVACAINE [Suspect]
     Active Substance: BUPIVACAINE
     Dosage: 1 MILLILITER
     Route: 065
  12. BUPIVACAINE [Suspect]
     Active Substance: BUPIVACAINE
     Dosage: UNK
     Route: 065
  13. FENTANYL CITRATE [Suspect]
     Active Substance: FENTANYL CITRATE
     Indication: Anaesthesia
     Dosage: UNK
     Route: 037
  14. FENTANYL CITRATE [Suspect]
     Active Substance: FENTANYL CITRATE
     Indication: Epidural anaesthesia
     Dosage: 15.0 MICROGRAM
     Route: 037
  15. FENTANYL CITRATE [Suspect]
     Active Substance: FENTANYL CITRATE
     Indication: Induction of anaesthesia
  16. CARBETOCIN [Suspect]
     Active Substance: CARBETOCIN
     Indication: Product used for unknown indication
     Dosage: UNK
     Route: 065
  17. CARBETOCIN [Suspect]
     Active Substance: CARBETOCIN
     Dosage: 100.0 MICROGRAM (SINGLE USE VIAL)
     Route: 065
  18. MORPHINE [Suspect]
     Active Substance: MORPHINE
     Indication: Anaesthesia
     Dosage: UNK
     Route: 065
  19. MORPHINE [Suspect]
     Active Substance: MORPHINE
     Indication: Induction of anaesthesia
     Dosage: 200 MICROGRAM
     Route: 037
  20. MORPHINE [Suspect]
     Active Substance: MORPHINE
     Dosage: 200 MICROGRAM
     Route: 065
  21. PHENYLEPHRINE [Suspect]
     Active Substance: PHENYLEPHRINE HYDROCHLORIDE
     Indication: Product used for unknown indication
     Dosage: UNK
     Route: 065
  22. LACTATED RINGERS SOLUTION [Suspect]
     Active Substance: CALCIUM CHLORIDE\POTASSIUM CHLORIDE\SODIUM CHLORIDE\SODIUM LACTATE
     Indication: Product used for unknown indication
     Dosage: UNK
     Route: 065
  23. TINZAPARIN [Suspect]
     Active Substance: TINZAPARIN
     Indication: Product used for unknown indication
     Dosage: UNK
     Route: 065
  24. CARBETOCIN [Suspect]
     Active Substance: CARBETOCIN
     Indication: Product used for unknown indication
     Dosage: 100 MICROGRAM
     Route: 065
  25. CARBETOCIN [Suspect]
     Active Substance: CARBETOCIN
     Dosage: 100 MILLIGRAM
     Route: 065
  26. LIDOCAINE [Suspect]
     Active Substance: LIDOCAINE
     Indication: Product used for unknown indication
     Dosage: 5 MILLILITER
     Route: 008
  27. LIDOCAINE [Suspect]
     Active Substance: LIDOCAINE
     Dosage: UNK
     Route: 061
  28. LIDOCAINE [Suspect]
     Active Substance: LIDOCAINE
     Dosage: 2 PERCENT
     Route: 065
  29. EPINEPHRINE [Suspect]
     Active Substance: EPINEPHRINE
     Indication: Product used for unknown indication
     Dosage: UNK
     Route: 008
  30. PHENYLEPHRINE [Suspect]
     Active Substance: PHENYLEPHRINE HYDROCHLORIDE
     Indication: Product used for unknown indication
     Dosage: UNK
     Route: 041
  31. PHENYLEPHRINE [Suspect]
     Active Substance: PHENYLEPHRINE HYDROCHLORIDE
     Dosage: UNK
     Route: 042
  32. FENTANYL [Suspect]
     Active Substance: FENTANYL\FENTANYL CITRATE
     Indication: Epidural anaesthesia
     Dosage: 15 MICROGRAM
     Route: 037
  33. LANSOPRAZOLE [Suspect]
     Active Substance: LANSOPRAZOLE
     Indication: Product used for unknown indication
     Dosage: UNK
     Route: 065
  34. FENTANYL [Suspect]
     Active Substance: FENTANYL\FENTANYL CITRATE
     Indication: Induction of anaesthesia
     Dosage: 15 MICROGRAM
     Route: 037
  35. FENTANYL [Suspect]
     Active Substance: FENTANYL\FENTANYL CITRATE
     Indication: Epidural anaesthesia
     Dosage: UNK
     Route: 037
  36. AZATHIOPRINE [Concomitant]
     Active Substance: AZATHIOPRINE
     Indication: Product used for unknown indication
     Dosage: UNK
     Route: 065
  37. BUPIVACAINE [Concomitant]
     Active Substance: BUPIVACAINE
     Indication: Product used for unknown indication
     Dosage: UNK SOLUTION BLOCK/INFILTRATION
     Route: 065
  38. LIDOCAINE;NOREPINEPHRINE [Concomitant]
     Indication: Product used for unknown indication
     Dosage: 5 MILLILITER
     Route: 008

REACTIONS (9)
  - Dyspnoea [Unknown]
  - Anxiety [Unknown]
  - Normal newborn [Unknown]
  - Contraindicated product administered [Unknown]
  - Product monitoring error [Unknown]
  - Live birth [Unknown]
  - Exposure during pregnancy [Unknown]
  - Maternal exposure during pregnancy [Unknown]
  - Premature delivery [Unknown]
